FAERS Safety Report 19506924 (Version 2)
Quarter: 2021Q3

REPORT INFORMATION
  Report Type: Spontaneous
  Country: US (occurrence: US)
  Receive Date: 20210708
  Receipt Date: 20210811
  Transmission Date: 20211014
  Serious: Yes (Hospitalization, Other)
  Sender: FDA-Public Use
  Company Number: US-ASTRAZENECA-2021A586044

PATIENT
  Age: 60 Year
  Sex: Female
  Weight: 123.8 kg

DRUGS (1)
  1. BYDUREON BCISE [Suspect]
     Active Substance: EXENATIDE
     Indication: DIABETES MELLITUS
     Route: 058

REACTIONS (10)
  - Renal impairment [Unknown]
  - Blood glucose increased [Unknown]
  - Device leakage [Unknown]
  - COVID-19 [Unknown]
  - Feeding disorder [Unknown]
  - Device delivery system issue [Not Recovered/Not Resolved]
  - Pneumonia [Unknown]
  - Cellulitis [Unknown]
  - Weight decreased [Unknown]
  - Alopecia [Unknown]

NARRATIVE: CASE EVENT DATE: 2020
